FAERS Safety Report 5082167-8 (Version None)
Quarter: 2006Q3

REPORT INFORMATION
  Report Type: 
  Country: None (occurrence: None)
  Receive Date: 20060814
  Receipt Date: 20060712
  Transmission Date: 20061208
  Serious: Yes (Other)
  Sender: FDA-Public Use
  Company Number: CHNY2006JP02140

PATIENT
  Age: 38 Year
  Sex: Female
  Weight: 60 kg

DRUGS (1)
  1. NICOTINE [Suspect]
     Indication: SMOKING CESSATION THERAPY
     Dosage: 1 DF, QD, TRANSDERMAL
     Route: 062
     Dates: start: 20060602, end: 20060707

REACTIONS (9)
  - APPLICATION SITE ERYTHEMA [None]
  - ERYTHEMA [None]
  - HOT FLUSH [None]
  - LOCAL SWELLING [None]
  - MALAISE [None]
  - OEDEMA PERIPHERAL [None]
  - PRURITUS [None]
  - RASH [None]
  - SWELLING FACE [None]
